FAERS Safety Report 7356745-7 (Version None)
Quarter: 2011Q1

REPORT INFORMATION
  Report Type: 
  Country: None (occurrence: None)
  Receive Date: 20110316
  Receipt Date: 20110308
  Transmission Date: 20110831
  Serious: Yes (Other)
  Sender: FDA-Public Use
  Company Number: US-MERCK-1101USA01052

PATIENT
  Age: 65 Year
  Sex: Female

DRUGS (6)
  1. FOSAMAX [Suspect]
     Route: 048
  2. FOSAMAX [Suspect]
     Indication: OSTEOARTHRITIS
     Route: 048
     Dates: start: 20030801, end: 20090101
  3. FOSAMAX PLUS D [Suspect]
     Indication: OSTEOPENIA
     Route: 048
  4. FOSAMAX [Suspect]
     Route: 048
  5. FOSAMAX [Suspect]
     Indication: OSTEOPENIA
     Route: 048
     Dates: start: 20030801, end: 20090101
  6. FOSAMAX PLUS D [Suspect]
     Indication: OSTEOARTHRITIS
     Route: 048

REACTIONS (5)
  - ARTHROPATHY [None]
  - RHEUMATOID ARTHRITIS [None]
  - FEMUR FRACTURE [None]
  - BONE DENSITY DECREASED [None]
  - IMPAIRED HEALING [None]
